FAERS Safety Report 16704054 (Version 2)
Quarter: 2019Q3

REPORT INFORMATION
  Report Type: Spontaneous
  Country: GB (occurrence: GB)
  Receive Date: 20190814
  Receipt Date: 20190821
  Transmission Date: 20191004
  Serious: No
  Sender: FDA-Public Use
  Company Number: GB-PFIZER INC-2019342459

PATIENT
  Age: 30 Week
  Sex: Male
  Weight: 1.66 kg

DRUGS (4)
  1. ETIDRONATE [Suspect]
     Active Substance: ETIDRONATE DISODIUM
     Indication: GASTROINTESTINAL DISORDER
     Dosage: 20 MG/KG, QD
  2. PAMIDRONATE DISODIUM. [Suspect]
     Active Substance: PAMIDRONATE DISODIUM
     Indication: ARTERIOSCLEROSIS
     Dosage: UNK
  3. CARVEDILOL. [Concomitant]
     Active Substance: CARVEDILOL
     Indication: CARDIAC FAILURE
  4. CARVEDILOL. [Concomitant]
     Active Substance: CARVEDILOL
     Indication: HYPERTENSION
     Dosage: UNK

REACTIONS (2)
  - Product use in unapproved indication [Unknown]
  - Off label use [Unknown]
